FAERS Safety Report 4327834-6 (Version None)
Quarter: 2004Q1

REPORT INFORMATION
  Report Type: 
  Country: None (occurrence: None)
  Receive Date: 20040325
  Receipt Date: 20040310
  Transmission Date: 20041129
  Serious: Yes (Other)
  Sender: FDA-Public Use
  Company Number: A0502473A

PATIENT
  Age: 62 Year
  Sex: Female
  Weight: 58.9676 kg

DRUGS (3)
  1. COMMIT [Suspect]
     Indication: EX-SMOKER
     Dosage: 2 MG / FOUR TIMES PER DAY / TRANSB
     Dates: start: 20040228, end: 20040309
  2. CONJUGATED ESTROGENS [Concomitant]
  3. LOVASTATIN [Concomitant]

REACTIONS (6)
  - CAUSTIC INJURY [None]
  - EATING DISORDER [None]
  - GINGIVAL PAIN [None]
  - MOUTH ULCERATION [None]
  - ORAL PAIN [None]
  - STOMATITIS [None]
